APPROVED DRUG PRODUCT: IBUPROFEN
Active Ingredient: IBUPROFEN
Strength: 600MG
Dosage Form/Route: TABLET;ORAL
Application: A070736 | Product #001
Applicant: RISING PHARMA HOLDINGS INC
Approved: Jun 12, 1986 | RLD: No | RS: No | Type: DISCN